FAERS Safety Report 25477131 (Version 2)
Quarter: 2025Q3

REPORT INFORMATION
  Report Type: Report from Study
  Country: US (occurrence: US)
  Receive Date: 20250625
  Receipt Date: 20250902
  Transmission Date: 20251021
  Serious: Yes (Hospitalization, Other)
  Sender: ACADIA PHARMACEUTICALS
  Company Number: US-ACADIA PHARMACEUTICALS INC.-ACA-2025-PIM-007465

PATIENT
  Age: 69 Year
  Sex: Male

DRUGS (25)
  1. NUPLAZID [Suspect]
     Active Substance: PIMAVANSERIN TARTRATE
     Indication: Parkinson^s disease
     Dosage: 34 MILLIGRAM, QD
     Route: 048
     Dates: start: 20231102
  2. NUPLAZID [Suspect]
     Active Substance: PIMAVANSERIN TARTRATE
     Dosage: 34 MILLIGRAM, QD
     Route: 048
     Dates: start: 20231123
  3. TYLENOL [Concomitant]
     Active Substance: ACETAMINOPHEN
  4. METFORMIN [Concomitant]
     Active Substance: METFORMIN HYDROCHLORIDE
  5. PANTOPRAZOLE [Concomitant]
     Active Substance: PANTOPRAZOLE
  6. CARDIAZEM [DILTIAZEM] [Concomitant]
  7. ELIQUIS [Concomitant]
     Active Substance: APIXABAN
  8. CARBIDOPA\LEVODOPA [Concomitant]
     Active Substance: CARBIDOPA\LEVODOPA
  9. LASIX [Concomitant]
     Active Substance: FUROSEMIDE
  10. CYMBALTA [Concomitant]
     Active Substance: DULOXETINE HYDROCHLORIDE
  11. AMITRIPTYLINE [Concomitant]
     Active Substance: AMITRIPTYLINE
  12. TRAZODONE [Concomitant]
     Active Substance: TRAZODONE HYDROCHLORIDE
  13. SINGULAIR [Concomitant]
     Active Substance: MONTELUKAST SODIUM
  14. JANUVIA [Concomitant]
     Active Substance: SITAGLIPTIN PHOSPHATE
  15. SPIRONOLACTONE [Concomitant]
     Active Substance: SPIRONOLACTONE
  16. SPIRIVA [Concomitant]
     Active Substance: TIOTROPIUM BROMIDE MONOHYDRATE
  17. FINASTERIDE [Concomitant]
     Active Substance: FINASTERIDE
  18. LOSARTAN [Concomitant]
     Active Substance: LOSARTAN
  19. LIPITOR [Concomitant]
     Active Substance: ATORVASTATIN CALCIUM
  20. GLIPIZIDE [Concomitant]
     Active Substance: GLIPIZIDE
  21. FUROSEMIDE [Concomitant]
     Active Substance: FUROSEMIDE
  22. DULOXETINE [Concomitant]
     Active Substance: DULOXETINE
  23. MONTELUKAST [Concomitant]
     Active Substance: MONTELUKAST
  24. INSULIN GLARGINE [Concomitant]
     Active Substance: INSULIN GLARGINE
  25. ATORVASTATIN [Concomitant]
     Active Substance: ATORVASTATIN

REACTIONS (2)
  - Pneumonia [Unknown]
  - Staphylococcal infection [Not Recovered/Not Resolved]

NARRATIVE: CASE EVENT DATE: 20250525
